FAERS Safety Report 5206653-2 (Version None)
Quarter: 2006Q4

REPORT INFORMATION
  Report Type: 
  Country: None (occurrence: None)
  Receive Date: 20061026
  Receipt Date: 20060708
  Transmission Date: 20070319
  Serious: No
  Sender: FDA-Public Use
  Company Number: 2006086958

PATIENT
  Age: 62 Year
  Sex: Male
  Weight: 48.0813 kg

DRUGS (3)
  1. LYRICA [Suspect]
     Indication: NEURALGIA
     Dosage: 100 MG (50 MG, 2 IN 1 D); ORAL
     Route: 048
     Dates: start: 20060706, end: 20060708
  2. ALBUTEROL [Concomitant]
  3. PREVACID [Concomitant]

REACTIONS (3)
  - ABDOMINAL PAIN UPPER [None]
  - PRURITUS [None]
  - RASH [None]
